FAERS Safety Report 15029796 (Version 1)
Quarter: 2018Q2

REPORT INFORMATION
  Report Type: Spontaneous
  Country: US (occurrence: US)
  Receive Date: 20180619
  Receipt Date: 20180619
  Transmission Date: 20180711
  Serious: Yes (Other)
  Sender: FDA-Public Use
  Company Number: US-GLAXOSMITHKLINE-US2018109166

PATIENT
  Age: 40 Year
  Sex: Female

DRUGS (14)
  1. PLAQUENIL [Concomitant]
     Active Substance: HYDROXYCHLOROQUINE SULFATE
  2. TIZANIDINE. [Concomitant]
     Active Substance: TIZANIDINE
  3. LYRICA [Concomitant]
     Active Substance: PREGABALIN
  4. VITAMIN E [Concomitant]
     Active Substance: .ALPHA.-TOCOPHEROL
  5. DHEA [Concomitant]
     Active Substance: PRASTERONE
  6. OMEGA 3 [Concomitant]
     Active Substance: OMEGA-3 FATTY ACIDS
  7. BENLYSTA [Suspect]
     Active Substance: BELIMUMAB
     Indication: SYSTEMIC LUPUS ERYTHEMATOSUS
     Dosage: 700 MG, UNK
     Route: 042
     Dates: start: 201606
  8. TOPAMAX [Concomitant]
     Active Substance: TOPIRAMATE
  9. CALCIUM [Concomitant]
     Active Substance: CALCIUM
  10. SAVELLA [Concomitant]
     Active Substance: MILNACIPRAN HYDROCHLORIDE
  11. BENLYSTA [Suspect]
     Active Substance: BELIMUMAB
     Dosage: 800 MG, UNK
     Route: 042
     Dates: start: 2018
  12. PREDNISONE. [Concomitant]
     Active Substance: PREDNISONE
  13. GLUCOSAMINE [Concomitant]
     Active Substance: GLUCOSAMINE
  14. METHOTREXATE. [Concomitant]
     Active Substance: METHOTREXATE

REACTIONS (8)
  - Fatigue [Recovering/Resolving]
  - Drug ineffective [Unknown]
  - Drug effect incomplete [Unknown]
  - Bedridden [Recovering/Resolving]
  - Pyrexia [Recovering/Resolving]
  - Systemic lupus erythematosus [Recovering/Resolving]
  - Arthralgia [Recovering/Resolving]
  - Product quality issue [Unknown]

NARRATIVE: CASE EVENT DATE: 201611
